FAERS Safety Report 25779333 (Version 1)
Quarter: 2025Q3

REPORT INFORMATION
  Report Type: Report from Study
  Country: US (occurrence: US)
  Receive Date: 20250909
  Receipt Date: 20250909
  Transmission Date: 20251021
  Serious: Yes (Other)
  Sender: TAKEDA
  Company Number: US-TAKEDA-2025TUS076964

PATIENT
  Sex: Female

DRUGS (7)
  1. VEDOLIZUMAB [Suspect]
     Active Substance: VEDOLIZUMAB
     Indication: Crohn^s disease
     Dosage: 108 MILLIGRAM, Q2WEEKS
     Dates: start: 20250701
  2. VEDOLIZUMAB [Suspect]
     Active Substance: VEDOLIZUMAB
  3. COD LIVER OIL [Concomitant]
     Active Substance: COD LIVER OIL
  4. LINZESS [Concomitant]
     Active Substance: LINACLOTIDE
  5. PROAIR HFA [Concomitant]
     Active Substance: ALBUTEROL SULFATE
  6. LAMICTAL [Concomitant]
     Active Substance: LAMOTRIGINE
  7. MAGNESIUM GLYCINATE [Concomitant]
     Active Substance: MAGNESIUM GLYCINATE

REACTIONS (6)
  - Crohn^s disease [Unknown]
  - Alopecia [Unknown]
  - Weight fluctuation [Unknown]
  - Diarrhoea [Unknown]
  - Impaired quality of life [Unknown]
  - Abdominal pain [Unknown]
